FAERS Safety Report 4920827-7 (Version None)
Quarter: 2006Q1

REPORT INFORMATION
  Report Type: 
  Country: None (occurrence: None)
  Receive Date: 20060217
  Receipt Date: 20060201
  Transmission Date: 20060701
  Serious: Yes (Hospitalization)
  Sender: FDA-Public Use
  Company Number: 221955

PATIENT
  Age: 53 Year
  Sex: 0

DRUGS (3)
  1. AVASTIN [Suspect]
     Indication: PANCREATIC CARCINOMA
     Dosage: 5 MG/KG, Q28D, INTRAVENOUS
     Route: 042
     Dates: start: 20050819
  2. GEMCITABINE (GEMCITABINE HYDROCHLORIDE) [Suspect]
     Indication: PANCREATIC CARCINOMA
     Dosage: 1000 MG/M2, Q28D, INTRAVENOUS
     Route: 042
     Dates: start: 20050819
  3. CAPECITABINE (CAPECITABINE) [Suspect]
     Indication: PANCREATIC CARCINOMA

REACTIONS (2)
  - ABDOMINAL PAIN UPPER [None]
  - PNEUMONITIS [None]
